FAERS Safety Report 5608454-X (Version None)
Quarter: 2008Q1

REPORT INFORMATION
  Report Type: 
  Country: None (occurrence: None)
  Receive Date: 20080130
  Receipt Date: 20080124
  Transmission Date: 20080703
  Serious: Yes (Other)
  Sender: FDA-Public Use
  Company Number: JP-MERCK-0801USA05661

PATIENT
  Age: 62 Year
  Sex: Male

DRUGS (2)
  1. PEPCID [Suspect]
     Indication: GASTRITIS
     Route: 048
     Dates: start: 20080120
  2. THIATON [Concomitant]
     Route: 048
     Dates: start: 20080120

REACTIONS (1)
  - FAECES DISCOLOURED [None]
